FAERS Safety Report 5870638-3 (Version None)
Quarter: 2008Q3

REPORT INFORMATION
  Report Type: 
  Country: None (occurrence: None)
  Receive Date: 20080904
  Receipt Date: 20080828
  Transmission Date: 20090109
  Serious: Yes (Disabling)
  Sender: FDA-Public Use
  Company Number: D0057595A

PATIENT
  Age: 56 Year
  Sex: Female

DRUGS (5)
  1. ALTARGO [Suspect]
     Indication: CHEST WALL ABSCESS
     Route: 061
     Dates: start: 20080423, end: 20080424
  2. LIVIELLA [Concomitant]
     Route: 048
  3. FELIS [Concomitant]
     Dosage: 425MG PER DAY
     Route: 048
     Dates: start: 20060802
  4. VITAMIN D3 [Concomitant]
     Route: 048
  5. VESICARE [Concomitant]
     Dosage: 5MG PER DAY
     Route: 048

REACTIONS (20)
  - ATOPY [None]
  - BREAST PAIN [None]
  - DERMATITIS INFECTED [None]
  - ECZEMA HERPETICUM [None]
  - ERYTHEMA [None]
  - HYPERKINETIC HEART SYNDROME [None]
  - HYPERSENSITIVITY [None]
  - NEUROSIS [None]
  - PYODERMA [None]
  - RASH [None]
  - RASH PUSTULAR [None]
  - REACTION TO DRUG EXCIPIENTS [None]
  - SKIN DISORDER [None]
  - SKIN INDURATION [None]
  - SKIN INFLAMMATION [None]
  - SKIN INJURY [None]
  - SKIN NECROSIS [None]
  - SOFT TISSUE INJURY [None]
  - SOMATISATION DISORDER [None]
  - TACHYCARDIA [None]
